FAERS Safety Report 19051430 (Version 1)
Quarter: 2021Q1

REPORT INFORMATION
  Report Type: Spontaneous
  Country: US (occurrence: US)
  Receive Date: 20210324
  Receipt Date: 20210324
  Transmission Date: 20210420
  Serious: Yes (Hospitalization, Other)
  Sender: FDA-Public Use
  Company Number: US-SUN PHARMACEUTICAL INDUSTRIES LTD-2021R1-287030

PATIENT
  Age: 6 Year
  Sex: Female

DRUGS (1)
  1. CARBOPLATIN. [Suspect]
     Active Substance: CARBOPLATIN
     Indication: GLIOMA
     Dosage: 560 MILLIGRAM/SQ. METER, EVERY 28 DAYS FOR 13 CYCLES
     Route: 065

REACTIONS (5)
  - Haematuria [Recovered/Resolved]
  - Dehydration [Unknown]
  - Nausea [Unknown]
  - Hydronephrosis [Recovered/Resolved]
  - Vomiting [Unknown]
